FAERS Safety Report 18287699 (Version 1)
Quarter: 2020Q3

REPORT INFORMATION
  Report Type: Spontaneous
  Country: PT (occurrence: PT)
  Receive Date: 20200921
  Receipt Date: 20200921
  Transmission Date: 20201103
  Serious: Yes (Other)
  Sender: FDA-Public Use
  Company Number: PT-TEVA-2020-PT-1828724

PATIENT
  Age: 73 Year
  Sex: Female

DRUGS (1)
  1. ALENDRONIC ACID [Suspect]
     Active Substance: ALENDRONIC ACID
     Indication: OSTEOPOROSIS
     Dosage: 70 MILLIGRAM
     Route: 048
     Dates: start: 200712, end: 200812

REACTIONS (3)
  - Osteonecrosis [Recovering/Resolving]
  - Purulent discharge [Recovering/Resolving]
  - Gingival ulceration [Recovering/Resolving]

NARRATIVE: CASE EVENT DATE: 200810
